FAERS Safety Report 13889382 (Version 4)
Quarter: 2017Q4

REPORT INFORMATION
  Report Type: Spontaneous
  Country: US (occurrence: US)
  Receive Date: 20170822
  Receipt Date: 20171003
  Transmission Date: 20180320
  Serious: Yes (Hospitalization, Other)
  Sender: FDA-Public Use
  Company Number: US-ASTRAZENECA-2017SE83316

PATIENT
  Age: 56 Year
  Sex: Female
  Weight: 54 kg

DRUGS (13)
  1. SYMBICORT [Suspect]
     Active Substance: BUDESONIDE\FORMOTEROL FUMARATE DIHYDRATE
     Indication: CHRONIC OBSTRUCTIVE PULMONARY DISEASE
     Dosage: FORMOTEROL/BUDESONIDE NEBULIZER, 12 MCG/0.5 MG TWO TIMES A DAY AS REQUIRED
     Route: 055
     Dates: start: 20170407
  2. OXYGEN. [Concomitant]
     Active Substance: OXYGEN
     Indication: CHRONIC OBSTRUCTIVE PULMONARY DISEASE
     Dosage: TWO AND A HALF TO THREE LITRES AT NIGHT AS REQUIRED
     Route: 055
  3. OXYGEN. [Concomitant]
     Active Substance: OXYGEN
     Indication: CHRONIC OBSTRUCTIVE PULMONARY DISEASE
     Dosage: 2.0L AS REQUIRED
     Route: 055
     Dates: start: 2013
  4. OXYGEN. [Concomitant]
     Active Substance: OXYGEN
     Indication: SLEEP DISORDER
     Dosage: 2.0L AS REQUIRED
     Route: 055
     Dates: start: 2013
  5. OXYGEN. [Concomitant]
     Active Substance: OXYGEN
     Indication: SLEEP DISORDER
     Dosage: TWO AND A HALF TO THREE LITRES AT NIGHT AS REQUIRED
     Route: 055
  6. SYMBICORT [Suspect]
     Active Substance: BUDESONIDE\FORMOTEROL FUMARATE DIHYDRATE
     Indication: CHRONIC OBSTRUCTIVE PULMONARY DISEASE
     Dosage: 160/4.5 MCG TWO INHALATIONS, TWICE A DAY
     Route: 055
     Dates: start: 2012
  7. TUDORZA PRESSAIR [Suspect]
     Active Substance: ACLIDINIUM BROMIDE
     Indication: CHRONIC OBSTRUCTIVE PULMONARY DISEASE
     Route: 055
     Dates: start: 2013
  8. SYMBICORT [Suspect]
     Active Substance: BUDESONIDE\FORMOTEROL FUMARATE DIHYDRATE
     Indication: EMPHYSEMA
     Dosage: 160/4.5 MCG TWO INHALATIONS, TWICE A DAY
     Route: 055
     Dates: start: 2012
  9. SYMBICORT [Suspect]
     Active Substance: BUDESONIDE\FORMOTEROL FUMARATE DIHYDRATE
     Indication: CHRONIC OBSTRUCTIVE PULMONARY DISEASE
     Dosage: 160/4.5 MCG, AS REQUIRED AS REQUIRED
     Route: 055
     Dates: start: 201708
  10. XANAX [Concomitant]
     Active Substance: ALPRAZOLAM
     Indication: ANXIETY
     Dosage: 0.25MG AS REQUIRED
     Route: 048
  11. SYMBICORT [Suspect]
     Active Substance: BUDESONIDE\FORMOTEROL FUMARATE DIHYDRATE
     Indication: EMPHYSEMA
     Dosage: FORMOTEROL/BUDESONIDE NEBULIZER, 12 MCG/0.5 MG TWO TIMES A DAY AS REQUIRED
     Route: 055
     Dates: start: 20170407
  12. SYMBICORT [Suspect]
     Active Substance: BUDESONIDE\FORMOTEROL FUMARATE DIHYDRATE
     Indication: EMPHYSEMA
     Dosage: 160/4.5 MCG, AS REQUIRED AS REQUIRED
     Route: 055
     Dates: start: 201708
  13. LOSARTAN/HCTZ [Concomitant]
     Active Substance: HYDROCHLOROTHIAZIDE\LOSARTAN
     Indication: BLOOD PRESSURE ABNORMAL
     Dosage: 120/25 MG DAILY
     Route: 048

REACTIONS (21)
  - Depression [Recovered/Resolved]
  - Oxygen saturation decreased [Not Recovered/Not Resolved]
  - Decubitus ulcer [Unknown]
  - Weight decreased [Unknown]
  - Device breakage [Unknown]
  - Dyspnoea [Unknown]
  - Drug dose omission [Recovered/Resolved]
  - Intentional product misuse [Not Recovered/Not Resolved]
  - Ill-defined disorder [Unknown]
  - Cerebrovascular accident [Not Recovered/Not Resolved]
  - Drug ineffective [Not Recovered/Not Resolved]
  - Chest pain [Unknown]
  - Loss of personal independence in daily activities [Unknown]
  - Device malfunction [Unknown]
  - Loss of consciousness [Recovered/Resolved]
  - Suicidal ideation [Recovered/Resolved]
  - Visual impairment [Not Recovered/Not Resolved]
  - Body height decreased [Unknown]
  - Memory impairment [Not Recovered/Not Resolved]
  - Anxiety [Unknown]
  - Angina pectoris [Unknown]

NARRATIVE: CASE EVENT DATE: 2013
